FAERS Safety Report 21485478 (Version 1)
Quarter: 2022Q4

REPORT INFORMATION
  Report Type: Report from Study
  Country: DE (occurrence: DE)
  Receive Date: 20221020
  Receipt Date: 20221020
  Transmission Date: 20230112
  Serious: Yes (Hospitalization)
  Sender: FDA-Public Use
  Company Number: None

PATIENT
  Age: 68 Year
  Sex: Female

DRUGS (32)
  1. MARCUMAR [Suspect]
     Active Substance: PHENPROCOUMON
     Indication: Thrombosis prophylaxis
     Dosage: FREQUENCY: AS NEEDED
     Route: 065
     Dates: start: 20030728, end: 20030814
  2. SPIRONOLACTONE [Suspect]
     Active Substance: SPIRONOLACTONE
     Indication: Oedema
     Dosage: FREQ:FREQUENCY: DAILY
     Route: 065
  3. SPIRONOLACTONE [Suspect]
     Active Substance: SPIRONOLACTONE
     Indication: Hyperuricaemia
     Dosage: DOSAGE REPORTED AS 50MG 25MG
     Route: 065
     Dates: start: 20030724
  4. PHENPROCOUMON [Suspect]
     Active Substance: PHENPROCOUMON
     Indication: Thrombosis prophylaxis
     Dosage: DOSAGE REPORTED AS N.INR
     Route: 065
     Dates: start: 20030728
  5. CORDAREX [Suspect]
     Active Substance: AMIODARONE
     Indication: Tachycardia
     Dosage: DOSAGE REPORTED AS 200 MG 1-0-0
     Route: 065
     Dates: start: 20030721, end: 20030721
  6. CORDAREX [Suspect]
     Active Substance: AMIODARONE
     Dosage: FREQUENCY: ONCE
     Route: 065
     Dates: start: 20030721, end: 20030722
  7. HYDROCHLOROTHIAZIDE\RAMIPRIL [Suspect]
     Active Substance: HYDROCHLOROTHIAZIDE\RAMIPRIL
     Indication: Hypertonia
     Dosage: DOSAGE REPORTED AS 2,5MG 1-0-0
     Route: 065
     Dates: start: 20030722
  8. POTASSIUM CHLORIDE [Suspect]
     Active Substance: POTASSIUM CHLORIDE
     Indication: Electrolyte substitution therapy
     Dosage: DOSAGE REPORTED AS BT 4/3/2 BRSTBL
     Route: 065
     Dates: start: 20030722, end: 20030724
  9. TORSEMIDE [Suspect]
     Active Substance: TORSEMIDE
     Indication: Oedema
     Dosage: UNK
     Route: 065
     Dates: start: 20030721
  10. DIGITOXIN [Suspect]
     Active Substance: DIGITOXIN
     Indication: Oedema
     Dosage: UNK
     Route: 065
  11. DIGITOXIN [Suspect]
     Active Substance: DIGITOXIN
     Indication: Hypertension
  12. BISOPROLOL FUMARATE [Suspect]
     Active Substance: BISOPROLOL FUMARATE
     Indication: Oedema
     Dosage: DOSAGE REPORTED AS 10MG 5MG
     Route: 065
     Dates: start: 20030722, end: 20030722
  13. BISOPROLOL FUMARATE [Suspect]
     Active Substance: BISOPROLOL FUMARATE
     Indication: Hypertonia
     Dosage: TEXT:10 MG; 5MG
     Route: 065
     Dates: start: 20030722, end: 20030727
  14. AQUAPHOR [Suspect]
     Active Substance: PETROLATUM
     Indication: Oedema
     Dosage: 40 MILLIGRAM
     Route: 065
     Dates: start: 20030721, end: 20030730
  15. AMPICILLIN SODIUM\SULBACTAM SODIUM [Suspect]
     Active Substance: AMPICILLIN SODIUM\SULBACTAM SODIUM
     Indication: Erysipelas
     Dosage: DOSAGE REPORTED AS INJLSG 3G 3X3G
     Route: 065
     Dates: start: 20030721, end: 20030728
  16. BISOPROLOL FUMARATE [Suspect]
     Active Substance: BISOPROLOL FUMARATE
     Indication: Hypertension
     Dosage: TEXT:10 MG; 5MG
     Route: 065
     Dates: start: 20030722, end: 20070814
  17. DIGITOXIN [Suspect]
     Active Substance: DIGITOXIN
     Indication: Tachyarrhythmia
     Dosage: DOSAGE REPORTED AS INJLSG 0.25MG 1-0-1 1-0-0
     Route: 065
     Dates: start: 20030722, end: 20030723
  18. AMPICILLIN SODIUM\SULBACTAM SODIUM [Suspect]
     Active Substance: AMPICILLIN SODIUM\SULBACTAM SODIUM
     Indication: Erysipelas
     Dosage: DAILY DOSE: 9 G GRAM(S) EVERY DAY
     Route: 065
     Dates: start: 20030721, end: 20030728
  19. CLOBUTINOL HYDROCHLORIDE [Suspect]
     Active Substance: CLOBUTINOL HYDROCHLORIDE
     Indication: Cough
     Dosage: DOSAGE REPORTED AS TROPFEN 20TR (DRP)
     Route: 065
     Dates: start: 20030722, end: 20030723
  20. DIGITOXIN [Suspect]
     Active Substance: DIGITOXIN
     Indication: Tachyarrhythmia
     Dosage: DOSAGE REPORTED AS 0.1MG 1-0-0
     Route: 065
     Dates: start: 20030724
  21. HEPARIN [Suspect]
     Active Substance: HEPARIN SODIUM
     Indication: Thrombosis prophylaxis
     Dosage: DOSAGE REPORTED AS INJLSG 5000IE 25000IE
     Route: 065
     Dates: start: 20030721, end: 20030730
  22. RAMIPRIL [Suspect]
     Active Substance: RAMIPRIL
     Indication: Hypertension
     Dosage: 2.5 MILLIGRAM
     Route: 065
  23. AQUAPHOR [Suspect]
     Active Substance: PETROLATUM
     Indication: Oedema
     Dosage: DOSAGE REPORTED AS 40MG 20MG 10MG
     Route: 065
     Dates: start: 20030721, end: 20030730
  24. TEMAZEPAM [Suspect]
     Active Substance: TEMAZEPAM
     Indication: Sleep disorder
     Dosage: DOSE: 1 TABLET
     Route: 065
     Dates: start: 20030724, end: 20030727
  25. TEMAZEPAM [Suspect]
     Active Substance: TEMAZEPAM
     Indication: Insomnia
     Dosage: DOSAGE REPORTED AS 1TBL
     Route: 065
     Dates: start: 20030724, end: 20030727
  26. TORSEMIDE [Suspect]
     Active Substance: TORSEMIDE
     Indication: Oedema
     Dosage: DAILY DOSE: 90 MG MILLIGRAM(S) EVERY DAY
     Route: 065
     Dates: start: 20030721, end: 20030814
  27. ALLOPURINOL [Suspect]
     Active Substance: ALLOPURINOL
     Indication: Hyperuricaemia
     Dosage: DOSAGE REPORTED AS 300MG 0-0-1
     Route: 065
     Dates: start: 20030722
  28. Beloc [Concomitant]
     Indication: Hypertension
     Dosage: FREQUENCY: ONCE
     Route: 065
     Dates: start: 20030721, end: 20030721
  29. Silomat [Concomitant]
     Indication: Cough
     Dosage: 20 DROP (1/12 MILLILITRE) FREQUENCY: ONCE
     Route: 065
     Dates: start: 20030722, end: 20030723
  30. VALERIAN TINCTURE [Concomitant]
     Indication: Agitation
     Dosage: UNK
     Route: 065
     Dates: start: 20030721, end: 20030721
  31. VALERIAN [Concomitant]
     Active Substance: VALERIAN
     Indication: Agitation
     Dosage: DOSAGE REPORTED AS 1 TEASPOON
     Route: 065
     Dates: start: 20030721, end: 20030721
  32. FUROSEMIDE [Concomitant]
     Active Substance: FUROSEMIDE
     Indication: Oedema
     Dosage: DOSAGE REPORTED AS INJLSG 40MG
     Route: 065
     Dates: start: 20030721, end: 20030721

REACTIONS (5)
  - Stevens-Johnson syndrome [Recovered/Resolved]
  - Erythema [Recovered/Resolved]
  - Pruritus [Recovered/Resolved]
  - Lip erosion [Recovered/Resolved]
  - Blister [Recovered/Resolved]

NARRATIVE: CASE EVENT DATE: 20030804
